FAERS Safety Report 7491171-1 (Version None)
Quarter: 2011Q2

REPORT INFORMATION
  Report Type: 
  Country: None (occurrence: None)
  Receive Date: 20110519
  Receipt Date: 20110516
  Transmission Date: 20111010
  Serious: Yes (Hospitalization)
  Sender: FDA-Public Use
  Company Number: JP-PFIZER INC-2011104982

PATIENT
  Age: 80 Year
  Sex: Female

DRUGS (6)
  1. ZETIA [Concomitant]
     Route: 048
  2. OMEPRAZOLE [Concomitant]
  3. TOLTERODINE TARTRATE [Suspect]
     Dosage: 4 MG, A DAY
     Route: 048
  4. EVISTA [Concomitant]
     Route: 048
  5. AMLODIPINE [Concomitant]
     Route: 048
  6. FLUCAM [Concomitant]
     Route: 048

REACTIONS (3)
  - FALL [None]
  - SYNCOPE [None]
  - DIZZINESS [None]
